FAERS Safety Report 17884530 (Version 7)
Quarter: 2022Q1

REPORT INFORMATION
  Report Type: Spontaneous
  Country: GB (occurrence: GB)
  Receive Date: 20200611
  Receipt Date: 20220323
  Transmission Date: 20220423
  Serious: Yes (Death, Other)
  Sender: FDA-Public Use
  Company Number: GB-EUSA PHARMA (UK) LIMITED-2020GB000052

PATIENT
  Age: 66 Year
  Sex: Female

DRUGS (22)
  1. TOCILIZUMAB [Suspect]
     Active Substance: TOCILIZUMAB
     Indication: Immune effector cell-associated neurotoxicity syndrome
     Dosage: 4 TIMES
     Route: 065
     Dates: start: 20200113, end: 20200120
  2. TOCILIZUMAB [Suspect]
     Active Substance: TOCILIZUMAB
     Indication: Cytokine release syndrome
     Route: 065
  3. TOCILIZUMAB [Suspect]
     Active Substance: TOCILIZUMAB
     Indication: Immune effector cell-associated neurotoxicity syndrome
  4. ANAKINRA [Suspect]
     Active Substance: ANAKINRA
     Indication: Immune effector cell-associated neurotoxicity syndrome
     Route: 065
     Dates: start: 20200124
  5. ANAKINRA [Suspect]
     Active Substance: ANAKINRA
     Indication: Immune effector cell-associated neurotoxicity syndrome
     Route: 065
  6. ANAKINRA [Suspect]
     Active Substance: ANAKINRA
     Indication: Myasthenic syndrome
  7. DEXAMETHASONE [Suspect]
     Active Substance: DEXAMETHASONE
     Indication: Immune effector cell-associated neurotoxicity syndrome
     Route: 065
     Dates: start: 20200121
  8. DEXAMETHASONE [Suspect]
     Active Substance: DEXAMETHASONE
     Indication: Immune effector cell-associated neurotoxicity syndrome
     Route: 065
  9. METHYLPREDNISOLONE [Suspect]
     Active Substance: METHYLPREDNISOLONE
     Indication: Immune effector cell-associated neurotoxicity syndrome
     Route: 065
  10. METHYLPREDNISOLONE [Suspect]
     Active Substance: METHYLPREDNISOLONE
     Indication: Immune effector cell-associated neurotoxicity syndrome
     Route: 065
  11. SYLVANT [Suspect]
     Active Substance: SILTUXIMAB
     Indication: Cytokine release syndrome
     Route: 042
     Dates: start: 20191230
  12. SYLVANT [Suspect]
     Active Substance: SILTUXIMAB
     Route: 042
     Dates: start: 20200210
  13. LEVETIRACETAM [Concomitant]
     Active Substance: LEVETIRACETAM
     Indication: Lymphocyte adoptive therapy
     Dosage: UNK
     Route: 065
     Dates: start: 20200108
  14. AZATHIOPRINE [Concomitant]
     Active Substance: AZATHIOPRINE
     Indication: Myasthenic syndrome
     Dosage: UNK
     Route: 065
  15. ACYCLOVIR [Concomitant]
     Active Substance: ACYCLOVIR
     Indication: Lymphocyte adoptive therapy
     Dosage: UNK
     Route: 065
     Dates: start: 20200103
  16. METOCLOPRAMIDE [Concomitant]
     Active Substance: METOCLOPRAMIDE
     Indication: Lymphocyte adoptive therapy
     Dosage: UNK
     Route: 065
     Dates: start: 20200103
  17. PREDNISOLONE [Concomitant]
     Active Substance: PREDNISOLONE
     Indication: Myasthenic syndrome
     Dosage: UNK
     Route: 065
     Dates: start: 20200210
  18. CIPROFLOXACIN [Concomitant]
     Active Substance: CIPROFLOXACIN
     Indication: Lymphocyte adoptive therapy
     Dosage: UNK
     Route: 065
     Dates: start: 20200103
  19. FLUCONAZOLE [Concomitant]
     Active Substance: FLUCONAZOLE
     Indication: Lymphocyte adoptive therapy
     Dosage: UNK
     Route: 065
     Dates: start: 20200106
  20. FILGRASTIM [Concomitant]
     Active Substance: FILGRASTIM
     Indication: Lymphocyte adoptive therapy
     Dosage: UNK
     Route: 065
     Dates: start: 20200130
  21. ONDANSETRON [Concomitant]
     Active Substance: ONDANSETRON
     Indication: Lymphocyte adoptive therapy
     Dosage: UNK
     Route: 065
     Dates: start: 20200103
  22. FILGRASTIM [Concomitant]
     Active Substance: FILGRASTIM
     Indication: Lymphocyte adoptive therapy
     Dates: start: 20200130

REACTIONS (6)
  - Diffuse large B-cell lymphoma [Fatal]
  - Toxicity to various agents [Fatal]
  - Disease progression [Fatal]
  - Immune effector cell-associated neurotoxicity syndrome [Unknown]
  - Cytokine release syndrome [Unknown]
  - Off label use [Fatal]

NARRATIVE: CASE EVENT DATE: 20200301
